FAERS Safety Report 15851826 (Version 2)
Quarter: 2019Q1

REPORT INFORMATION
  Report Type: Report from Study
  Country: IT (occurrence: IT)
  Receive Date: 20190122
  Receipt Date: 20190126
  Transmission Date: 20190417
  Serious: Yes (Hospitalization)
  Sender: FDA-Public Use
  Company Number: IT-ROCHE-2246633

PATIENT
  Age: 63 Year
  Sex: Female
  Weight: 65 kg

DRUGS (3)
  1. ATEZOLIZUMAB. [Suspect]
     Active Substance: ATEZOLIZUMAB
     Indication: BREAST CANCER
     Dosage: ON 04/JAN/2019, SHE RECEIVED THE MOST RECENT DOSE OF ATEZOLIZUMAB PRIOR TO AE (ADVERSE EVENT) ONSET.
     Route: 042
     Dates: start: 20181123
  2. CYCLOPHOSPHAMIDE. [Suspect]
     Active Substance: CYCLOPHOSPHAMIDE
     Indication: BREAST CANCER
     Dosage: ON 04/JAN/2019, SHE RECEIVED THE MOST RECENT DOSE OF CYCLOPHOSPHAMIDE PRIOR TO AE (ADVERSE EVENT) ON
     Route: 042
     Dates: start: 20181123
  3. DOXORUBICIN [Suspect]
     Active Substance: DOXORUBICIN
     Indication: BREAST CANCER
     Dosage: ON 04/JAN/2019, SHE RECEIVED THE MOST RECENT DOSE OF DOXORUBICIN PRIOR TO AE (ADVERSE EVENT) ONSET.
     Route: 042
     Dates: start: 20181123

REACTIONS (1)
  - Febrile neutropenia [Recovered/Resolved]

NARRATIVE: CASE EVENT DATE: 20190114
